FAERS Safety Report 23651099 (Version 1)
Quarter: 2024Q1

REPORT INFORMATION
  Report Type: Spontaneous
  Country: PL (occurrence: PL)
  Receive Date: 20240320
  Receipt Date: 20240320
  Transmission Date: 20240409
  Serious: Yes (Life-Threatening, Hospitalization)
  Sender: FDA-Public Use
  Company Number: None

PATIENT
  Age: 82 Year
  Sex: Female
  Weight: 53.5 kg

DRUGS (5)
  1. LENALIDOMIDE [Suspect]
     Active Substance: LENALIDOMIDE
     Indication: Follicular lymphoma
     Dosage: 10 MG, QD ON DAYS 1 TO 21 FOR 12 CYCLES (PRIOR TO THE EVENT ABDOMINAL PAIN)
     Route: 048
     Dates: start: 20230921
  2. LENALIDOMIDE [Suspect]
     Active Substance: LENALIDOMIDE
     Indication: Follicular lymphoma
     Dosage: 10 MG, QD ON DAYS 1 TO 21 FOR 12 CYCLES
     Route: 048
     Dates: start: 20230615
  3. LENALIDOMIDE [Suspect]
     Active Substance: LENALIDOMIDE
     Indication: Follicular lymphoma
     Dosage: 10 MG, QD ON DAYS 1 TO 21 FOR 12 CYCLES (PRIOR TO THE EVENT UPPER RESPIRATORY INFECTION)
     Route: 048
     Dates: start: 20230919
  4. RITUXIMAB [Suspect]
     Active Substance: RITUXIMAB
     Indication: Follicular lymphoma
     Dosage: 375 MG/M2 (579MG) FOR 5 CYCLES
     Route: 042
     Dates: start: 20230615
  5. RITUXIMAB [Suspect]
     Active Substance: RITUXIMAB
     Indication: Follicular lymphoma
     Dosage: 375 MG/M2 (572MG) FOR 5 CYCLES (LAST DOSE PRIOR TO THE SERIOUS ADVERSE EVENTS)
     Route: 042
     Dates: start: 20230906

REACTIONS (2)
  - Viral upper respiratory tract infection [Recovered/Resolved]
  - Abdominal pain [Recovered/Resolved]

NARRATIVE: CASE EVENT DATE: 20230920
